FAERS Safety Report 6405681-9 (Version None)
Quarter: 2009Q4

REPORT INFORMATION
  Report Type: 
  Country: None (occurrence: None)
  Receive Date: 20091019
  Receipt Date: 20091012
  Transmission Date: 20100525
  Serious: Yes (Death, Hospitalization)
  Sender: FDA-Public Use
  Company Number: D0063027A

PATIENT

DRUGS (1)
  1. ARIXTRA [Suspect]
     Dosage: 2.5MG PER DAY
     Route: 058

REACTIONS (4)
  - CATHETER SITE HAEMORRHAGE [None]
  - CEREBELLAR HAEMORRHAGE [None]
  - HAEMOGLOBIN DECREASED [None]
  - RENAL FAILURE [None]
